FAERS Safety Report 8989373 (Version 1)
Quarter: 2012Q4

REPORT INFORMATION
  Report Type: 
  Country: FR (occurrence: FR)
  Receive Date: 20121228
  Receipt Date: 20121228
  Transmission Date: 20130627
  Serious: Yes (Life-Threatening, Hospitalization)
  Sender: FDA-Public Use
  Company Number: FR-BAYER-2012-134211

PATIENT
  Age: 41 Year
  Sex: Female

DRUGS (9)
  1. CIFLOX [Suspect]
     Dosage: UNK
     Route: 042
     Dates: start: 20120714, end: 20120718
  2. DEPAKOTE [Suspect]
     Dosage: 1 DF, TID
     Route: 048
     Dates: start: 20110622, end: 20110627
  3. ZYPREXA [Suspect]
     Dosage: 1 DF, QD
     Route: 048
     Dates: start: 20110620, end: 20110704
  4. TERALITHE [Suspect]
     Dosage: UNK
     Route: 048
     Dates: start: 20110606, end: 20110703
  5. TERCIAN [Suspect]
     Dosage: UNK
     Dates: start: 20110606, end: 20110630
  6. IMOVANE [Suspect]
     Dosage: UNK
     Dates: start: 20110606
  7. PARKINANE [Suspect]
     Dosage: UNK
     Dates: start: 20110615, end: 20110704
  8. HALDOL [Suspect]
     Dosage: UNK
     Dates: start: 20110620, end: 20110630
  9. ROCEPHINE [Suspect]
     Dosage: UNK
     Route: 042
     Dates: start: 20120714, end: 20120718

REACTIONS (3)
  - Drug reaction with eosinophilia and systemic symptoms [Recovered/Resolved]
  - Toxic epidermal necrolysis [Recovering/Resolving]
  - Septic shock [None]
